FAERS Safety Report 5758620-8 (Version None)
Quarter: 2008Q2

REPORT INFORMATION
  Report Type: 
  Country: None (occurrence: None)
  Receive Date: 20080530
  Receipt Date: 20080526
  Transmission Date: 20081010
  Serious: Yes (Hospitalization)
  Sender: FDA-Public Use
  Company Number: THQ2008A00669

PATIENT
  Age: 78 Year
  Sex: Male

DRUGS (5)
  1. LEUPROLIDE ACETATE [Suspect]
     Indication: PROSTATE CANCER
     Dosage: 22.5 MG (22.5 MG, 1 IN 3 M) INJECTION
     Dates: start: 20070327, end: 20070627
  2. CAPTOPRIL [Concomitant]
  3. ZOLEDRONIC ACID [Concomitant]
  4. ALENDRONATE SODIUM [Concomitant]
  5. AMLODIPINE [Concomitant]

REACTIONS (4)
  - CONFUSIONAL STATE [None]
  - CONVULSION [None]
  - DYSARTHRIA [None]
  - SYNCOPE [None]
